FAERS Safety Report 5752216-X (Version None)
Quarter: 2008Q2

REPORT INFORMATION
  Report Type: 
  Country: None (occurrence: None)
  Receive Date: 20080529
  Receipt Date: 20080520
  Transmission Date: 20081010
  Serious: Yes (Death, Hospitalization)
  Sender: FDA-Public Use
  Company Number: SE-ROCHE-552988

PATIENT
  Sex: Male

DRUGS (21)
  1. XELODA [Suspect]
     Indication: RECTAL CANCER METASTATIC
     Dosage: 4 TABLETS AT NIGHT AND 3 IN THE MORNING
     Route: 065
     Dates: start: 20080218
  2. AVASTIN [Suspect]
     Indication: RECTAL CANCER METASTATIC
     Route: 065
     Dates: start: 20080218
  3. FOLFOX [Concomitant]
     Indication: RECTAL CANCER METASTATIC
     Dosage: RECEIVED FOUR DOSES
     Route: 065
     Dates: end: 20080131
  4. FOLFOX [Concomitant]
     Dosage: RECEIVED FOUR DOSES
     Route: 065
     Dates: end: 20080131
  5. FOLFOX [Concomitant]
     Dosage: RECEIVED FOUR DOSES
     Route: 065
     Dates: end: 20080131
  6. PANITUMUMAB [Concomitant]
     Indication: RECTAL CANCER METASTATIC
  7. FOLFIRI [Concomitant]
     Indication: RECTAL CANCER METASTATIC
  8. FOLFIRI [Concomitant]
  9. FOLFIRI [Concomitant]
  10. ALVEDON [Concomitant]
     Dosage: DRUG NAME: ALVEDON FORTE; DOSING: 1G 1X2
  11. DURAGESIC-100 [Concomitant]
     Dosage: DRUG: DUROGESIC PATCH; DOSAGE: 50 MCG/HOUR EVERY THREE DAYS. TAKEN WHEN NEEDED.
     Dates: end: 20080304
  12. KETOGAN [Concomitant]
     Dosage: 2-3 TAKEN WHEN NEEDED
     Dates: end: 20080304
  13. KETOGAN [Concomitant]
     Dosage: TAKEN WHEN NEEDED
     Dates: end: 20080304
  14. DIAZEPAM [Concomitant]
     Dosage: TAKEN WHEN NEEDED
  15. ZOLPIDEM TARTRATE [Concomitant]
     Dosage: TAKEN AT NIGHT WHEN REQUIRED
  16. BUSCOPAN [Concomitant]
     Dosage: TAKEN WHEN NEDED; MAXIMUM 100 MG DAILY
  17. PRIMPERAN TAB [Concomitant]
     Dosage: TAKEN WHEN NEEDED
  18. NULYTELY [Concomitant]
     Dosage: TAKEN WHEN NEEDED
  19. NULYTELY [Concomitant]
     Dosage: TAKEN WHEN NEEDED
  20. MORPHINE [Concomitant]
     Dosage: 2.3 WHEN NEEDED
  21. MERONEM [Concomitant]
     Dosage: DOSE: 1G X3

REACTIONS (8)
  - ABDOMINAL PAIN [None]
  - BRONCHOPNEUMONIA [None]
  - C-REACTIVE PROTEIN INCREASED [None]
  - DEEP VEIN THROMBOSIS [None]
  - FISTULA [None]
  - LARGE INTESTINE PERFORATION [None]
  - PERITONITIS [None]
  - SIGMOIDITIS [None]
